FAERS Safety Report 9643205 (Version 7)
Quarter: 2014Q2

REPORT INFORMATION
  Report Type: Spontaneous
  Country: SI (occurrence: SI)
  Receive Date: 20131024
  Receipt Date: 20140623
  Transmission Date: 20141212
  Serious: Yes (Other)
  Sender: FDA-Public Use
  Company Number: SI-JNJFOC-20131012526

PATIENT
  Age: 46 Year
  Sex: Female
  Weight: 70 kg

DRUGS (5)
  1. SIMPONI [Suspect]
     Indication: PSORIATIC ARTHROPATHY
     Route: 058
     Dates: start: 20111220, end: 20130917
  2. PRENESSA [Concomitant]
     Indication: HYPERTENSION
     Dosage: OCCASIONALLY, APP. ONCE PER WEEK
     Route: 048
  3. PRENEWEL [Concomitant]
     Indication: HYPERTENSION
     Dosage: 1.25 MG/4 MG
     Route: 065
  4. CELEBREX [Concomitant]
     Indication: PSORIATIC ARTHROPATHY
     Route: 048
     Dates: end: 20130917
  5. METHOTREXATE [Concomitant]
     Indication: ARTHROPATHY
     Route: 065

REACTIONS (2)
  - Renal failure [Recovering/Resolving]
  - Tubulointerstitial nephritis [Unknown]
